FAERS Safety Report 6878178-X (Version None)
Quarter: 2010Q3

REPORT INFORMATION
  Report Type: 
  Country: None (occurrence: None)
  Receive Date: 20100728
  Receipt Date: 20100715
  Transmission Date: 20110219
  Serious: Yes (Other)
  Sender: FDA-Public Use
  Company Number: GB-PFIZER INC-2010088218

PATIENT
  Age: 76 Year
  Sex: Female

DRUGS (1)
  1. SUTENT [Suspect]
     Indication: RENAL NEOPLASM
     Dosage: 25 MG, 1X/DAY
     Dates: start: 20100401

REACTIONS (1)
  - THROMBOPHLEBITIS SUPERFICIAL [None]
